FAERS Safety Report 5119447-3 (Version None)
Quarter: 2006Q3

REPORT INFORMATION
  Report Type: 
  Country: None (occurrence: None)
  Receive Date: 20060928
  Receipt Date: 20060914
  Transmission Date: 20061208
  Serious: Yes (Hospitalization)
  Sender: FDA-Public Use
  Company Number: 2006090028

PATIENT
  Age: 59 Year
  Sex: Male

DRUGS (2)
  1. CARISOPRODOL [Suspect]
     Indication: ILL-DEFINED DISORDER
     Dosage: (350 MG)
  2. METHOTREXATE [Suspect]
     Dosage: 2.5 MG TIW (2.5 MG, WK), ORAL
     Route: 048

REACTIONS (4)
  - ANAEMIA POSTOPERATIVE [None]
  - CHEST PAIN [None]
  - HERPES ZOSTER [None]
  - PAIN [None]
